FAERS Safety Report 7918111 (Version 2)
Quarter: 2012Q4

REPORT INFORMATION
  Report Type: 
  Country: US (occurrence: US)
  Receive Date: 20110428
  Receipt Date: 20121107
  Transmission Date: 20130627
  Serious: No
  Sender: FDA-Public Use
  Company Number: US-ASTRAZENECA-2010SE14638

PATIENT
  Age: 65 Year
  Sex: Female

DRUGS (1)
  1. ZOMIG [Suspect]
     Route: 048
     Dates: end: 20100326

REACTIONS (8)
  - Malaise [Unknown]
  - Bedridden [Unknown]
  - Migraine [Unknown]
  - Influenza [Unknown]
  - Malaise [Unknown]
  - Headache [Unknown]
  - Incorrect dose administered [Unknown]
  - Drug dose omission [Unknown]
